FAERS Safety Report 6073347-3 (Version None)
Quarter: 2009Q1

REPORT INFORMATION
  Report Type: 
  Country: None (occurrence: None)
  Receive Date: 20090211
  Receipt Date: 20090130
  Transmission Date: 20090719
  Serious: Yes (Hospitalization, Other)
  Sender: FDA-Public Use
  Company Number: US-ROCHE-606390

PATIENT
  Sex: Female
  Weight: 68.9 kg

DRUGS (15)
  1. CAPECITABINE [Suspect]
     Indication: COLORECTAL CANCER
     Dosage: STOPPED FOR 2-3 WEEKS
     Route: 048
  2. CAPECITABINE [Suspect]
     Route: 048
  3. SPIRIVA [Concomitant]
     Indication: CHRONIC OBSTRUCTIVE PULMONARY DISEASE
     Dosage: 1 INHALATION DAILY
  4. DARVOCET-N 100 [Concomitant]
     Indication: PAIN
     Dosage: DRUG NAME REPORTED: DARVOCET-N 100, ONE EVERY 8 HOURS AS NEEDED.
  5. PHENERGAN [Concomitant]
     Indication: NAUSEA
     Dosage: AS NEEDED
  6. BENICAR [Concomitant]
     Indication: HYPERTENSION
  7. CARDIZEM LA [Concomitant]
  8. METFORMIN HCL [Concomitant]
     Route: 048
  9. METFORMIN HCL [Concomitant]
     Dosage: DECREASED TO 500 MG EVERY NIGHT, ONLY HALF OF 1000 MG.
     Route: 048
  10. GLIPIZIDE [Concomitant]
     Route: 048
  11. DEPAMIDE [Concomitant]
  12. LOZOL [Concomitant]
  13. LOTREL [Concomitant]
     Dosage: 5/20 MG DAILY
  14. OMEPRAZOLE [Concomitant]
     Route: 048
  15. SIMVASTATIN [Concomitant]

REACTIONS (4)
  - HYPOGLYCAEMIC COMA [None]
  - HYPOPHAGIA [None]
  - OEDEMA PERIPHERAL [None]
  - SKIN EXFOLIATION [None]
